FAERS Safety Report 8127842-3 (Version None)
Quarter: 2012Q1

REPORT INFORMATION
  Report Type: 
  Country: None (occurrence: None)
  Receive Date: 20120210
  Receipt Date: 20110804
  Transmission Date: 20120608
  Serious: No
  Sender: FDA-Public Use
  Company Number: US-GLAXOSMITHKLINE-A0939678A

PATIENT
  Age: 68 Year
  Sex: Female

DRUGS (17)
  1. TOPAMAX [Concomitant]
  2. AMBIEN [Concomitant]
  3. FUROSEMIDE [Concomitant]
  4. PAXIL [Suspect]
     Indication: DEPRESSION
     Dosage: 30MG PER DAY
     Route: 048
     Dates: start: 20110701
  5. VITAMIN B50 [Concomitant]
  6. IRON [Concomitant]
  7. LYRICA [Concomitant]
  8. NIFEDIPINE [Concomitant]
  9. TRAMADOL HCL [Concomitant]
  10. PREMARIN [Concomitant]
  11. ATARAX [Concomitant]
  12. SEROQUEL [Concomitant]
  13. KLONOPIN [Concomitant]
  14. ZYRTEC [Concomitant]
  15. ACIPHEX [Concomitant]
  16. CALCIUM PLUS D [Concomitant]
  17. INDERAL [Concomitant]

REACTIONS (3)
  - TONGUE ULCERATION [None]
  - DECREASED APPETITE [None]
  - DRUG INEFFECTIVE [None]
